FAERS Safety Report 7599673-4 (Version None)
Quarter: 2011Q3

REPORT INFORMATION
  Report Type: 
  Country: None (occurrence: None)
  Receive Date: 20110711
  Receipt Date: 20110628
  Transmission Date: 20111222
  Serious: Yes (Life-Threatening, Hospitalization)
  Sender: FDA-Public Use
  Company Number: BS-ELI_LILLY_AND_COMPANY-BS201107000410

PATIENT
  Age: 74 Year
  Sex: Male

DRUGS (3)
  1. AMITRIPTYLINE HCL [Concomitant]
     Indication: DIABETIC NEUROPATHY
     Dosage: 25 MG, UNK
  2. DULOXETINE HYDROCHLORIDE [Suspect]
     Indication: DIABETIC NEUROPATHY
     Dosage: 30 MG, QD
     Route: 048
     Dates: start: 20110527
  3. NEURONTIN [Concomitant]
     Indication: DIABETIC NEUROPATHY
     Dosage: 600 MG, UNK

REACTIONS (4)
  - DYSARTHRIA [None]
  - DELIRIUM [None]
  - CARDIAC FAILURE [None]
  - BRONCHITIS [None]
